FAERS Safety Report 9804004 (Version 1)
Quarter: 2014Q1

REPORT INFORMATION
  Report Type: Spontaneous
  Country: US (occurrence: None)
  Receive Date: 20140107
  Receipt Date: 20140107
  Transmission Date: 20141002
  Serious: Yes (Life-Threatening, Hospitalization)
  Sender: FDA-Public Use
  Company Number: None

PATIENT
  Age: 62 Year
  Sex: Male
  Weight: 97 kg

DRUGS (2)
  1. ENOXAPARIN [Suspect]
     Indication: PULMONARY EMBOLISM
     Route: 058
     Dates: start: 20121031, end: 20121102
  2. DALTEPARIN [Suspect]
     Indication: DEEP VEIN THROMBOSIS
     Dosage: 5000 UNITS  EVERY DAY SQ
     Route: 058
     Dates: start: 20121002, end: 20121031

REACTIONS (1)
  - Heparin-induced thrombocytopenia [None]
